FAERS Safety Report 5055527-9 (Version None)
Quarter: 2006Q3

REPORT INFORMATION
  Report Type: 
  Country: None (occurrence: None)
  Receive Date: 20060714
  Receipt Date: 20060706
  Transmission Date: 20061208
  Serious: Yes (Other)
  Sender: FDA-Public Use
  Company Number: 2006085482

PATIENT
  Age: 8 Year
  Sex: Male

DRUGS (7)
  1. ZYRTEC [Suspect]
     Indication: HYPERSENSITIVITY
     Dosage: 5 MG (1 IN 1 D)
     Dates: start: 20060630, end: 20060704
  2. MOBIC [Concomitant]
  3. ALL OTHER THERAPEUTIC PRODUCTS (ALL OTHER THERAPEUTIC PRODUCTS) [Concomitant]
  4. ZANTAC [Concomitant]
  5. PENTASA ^PHARMACIA^ (MESALAZINE) [Concomitant]
  6. PREVACID [Concomitant]
  7. INSULIN [Concomitant]

REACTIONS (1)
  - BLOOD GLUCOSE INCREASED [None]
